FAERS Safety Report 10419305 (Version 4)
Quarter: 2014Q3

REPORT INFORMATION
  Report Type: Spontaneous
  Country: SG (occurrence: SG)
  Receive Date: 20140829
  Receipt Date: 20140918
  Transmission Date: 20150326
  Serious: Yes (Other)
  Sender: FDA-Public Use
  Company Number: SG-PFIZER INC-2014233384

PATIENT
  Age: 80 Year
  Sex: Male

DRUGS (1)
  1. LYRICA [Suspect]
     Active Substance: PREGABALIN
     Indication: NEURALGIA
     Dosage: 150-300 MG, DAILY
     Route: 048

REACTIONS (4)
  - Arthritis infective [Unknown]
  - Blood sodium decreased [Not Recovered/Not Resolved]
  - Oedema peripheral [Unknown]
  - Paronychia [Unknown]

NARRATIVE: CASE EVENT DATE: 20140610
